FAERS Safety Report 24991898 (Version 1)
Quarter: 2025Q1

REPORT INFORMATION
  Report Type: Spontaneous
  Country: US (occurrence: None)
  Receive Date: 20250220
  Receipt Date: 20250220
  Transmission Date: 20250408
  Serious: Yes (Death, Hospitalization)
  Sender: FDA-CTU
  Company Number: None

PATIENT
  Age: 52 Year
  Sex: Male
  Weight: 71 kg

DRUGS (1)
  1. APIXABAN [Suspect]
     Active Substance: APIXABAN
     Indication: Pulmonary embolism
     Dosage: FREQUENCY : TWICE A DAY;?
     Route: 048
     Dates: start: 20210820

REACTIONS (8)
  - Pulmonary embolism [None]
  - Pneumonia [None]
  - Acute kidney injury [None]
  - Electrolyte imbalance [None]
  - Ischaemic hepatitis [None]
  - Cholecystitis [None]
  - Cardiac arrest [None]
  - Acidosis [None]

NARRATIVE: CASE EVENT DATE: 20250210
